FAERS Safety Report 12137521 (Version 2)
Quarter: 2020Q3

REPORT INFORMATION
  Report Type: Report from Study
  Country: US (occurrence: US)
  Receive Date: 20160302
  Receipt Date: 20160519
  Transmission Date: 20201105
  Serious: Yes (Death, Hospitalization)
  Sender: FDA-Public Use
  Company Number: US-JNJFOC-20151206455

PATIENT
  Age: 46 Year
  Sex: Male
  Weight: 61 kg

DRUGS (30)
  1. SOLU?CORTEF [Concomitant]
     Active Substance: HYDROCORTISONE SODIUM SUCCINATE
     Indication: INFUSION RELATED REACTION
     Dosage: FREQUENCY ONCE
     Route: 042
     Dates: start: 20151118, end: 20151118
  2. VANCOMYCIN [Concomitant]
     Active Substance: VANCOMYCIN
     Indication: UPPER RESPIRATORY TRACT INFECTION
     Route: 042
     Dates: start: 20151122, end: 20151124
  3. OXYCONTIN [Concomitant]
     Active Substance: OXYCODONE HYDROCHLORIDE
     Indication: BONE PAIN
     Route: 048
     Dates: start: 20151123, end: 20151124
  4. MAXIPIME [Concomitant]
     Active Substance: CEFEPIME HYDROCHLORIDE
     Indication: UPPER RESPIRATORY TRACT INFECTION
     Route: 042
     Dates: start: 20151122, end: 20151123
  5. POMALYST [Concomitant]
     Active Substance: POMALIDOMIDE
     Indication: PLASMA CELL MYELOMA
     Route: 048
     Dates: start: 201503, end: 201511
  6. DARATUMUMAB [Suspect]
     Active Substance: DARATUMUMAB
     Indication: PLASMA CELL MYELOMA
     Dosage: CYCLE 1 DAY 15
     Route: 042
     Dates: start: 20151118, end: 20151118
  7. SOLU?CORTEF [Concomitant]
     Active Substance: HYDROCORTISONE SODIUM SUCCINATE
     Indication: REFLUX LARYNGITIS
     Dosage: FREQUENCY ONCE
     Route: 042
     Dates: start: 20151118, end: 20151118
  8. MORPHINE [Concomitant]
     Active Substance: MORPHINE
     Indication: UPPER RESPIRATORY TRACT INFECTION
     Route: 042
     Dates: start: 20151123, end: 20151124
  9. FIORICET [Concomitant]
     Active Substance: ACETAMINOPHEN\BUTALBITAL\CAFFEINE
     Indication: HEADACHE
     Dosage: EVERY 4 HOURS AS NECESSARY
     Route: 048
     Dates: start: 20151123, end: 20151124
  10. ARANESP [Concomitant]
     Active Substance: DARBEPOETIN ALFA
     Indication: ANAEMIA
     Dosage: AS NECESSARY
     Route: 058
     Dates: start: 201405
  11. BENADRYL [Concomitant]
     Active Substance: DIPHENHYDRAMINE HYDROCHLORIDE
     Indication: INFUSION RELATED REACTION
     Route: 042
     Dates: start: 20151118, end: 20151118
  12. DARATUMUMAB [Suspect]
     Active Substance: DARATUMUMAB
     Route: 042
  13. ZITHROMAX [Concomitant]
     Active Substance: AZITHROMYCIN DIHYDRATE
     Indication: UPPER RESPIRATORY TRACT INFECTION
     Route: 048
     Dates: start: 20151124
  14. TORADOL [Concomitant]
     Active Substance: KETOROLAC TROMETHAMINE
     Indication: HEADACHE
     Dosage: FREQUENCY ONCE
     Route: 042
     Dates: start: 20151122, end: 20151122
  15. OXYCONTIN [Concomitant]
     Active Substance: OXYCODONE HYDROCHLORIDE
     Indication: HEADACHE
     Route: 048
     Dates: start: 20151123, end: 20151124
  16. ASPIRIN. [Concomitant]
     Active Substance: ASPIRIN
     Indication: CARDIOVASCULAR EVENT PROPHYLAXIS
     Route: 048
     Dates: start: 20151008
  17. MAXIPIME [Concomitant]
     Active Substance: CEFEPIME HYDROCHLORIDE
     Indication: UPPER RESPIRATORY TRACT INFECTION
     Route: 042
     Dates: start: 20151123, end: 20151124
  18. BENADRYL [Concomitant]
     Active Substance: DIPHENHYDRAMINE HYDROCHLORIDE
     Indication: REFLUX LARYNGITIS
     Route: 042
     Dates: start: 20151118, end: 20151118
  19. OXYCONTIN [Concomitant]
     Active Substance: OXYCODONE HYDROCHLORIDE
     Indication: BACK PAIN
     Route: 048
     Dates: start: 20151123, end: 20151124
  20. DULCOLAX NOS [Concomitant]
     Active Substance: BISACODYL OR DOCUSATE SODIUM
     Indication: CONSTIPATION PROPHYLAXIS
     Dosage: THREE TIMES DAILY AS NECESSARY
     Route: 048
     Dates: start: 20141112
  21. COMPAZINE [Concomitant]
     Active Substance: PROCHLORPERAZINE MALEATE
     Indication: PROPHYLAXIS OF NAUSEA AND VOMITING
     Dosage: EVERY 6 HOURS AS NECESSARY
     Route: 048
     Dates: start: 201412
  22. MORPHINE [Concomitant]
     Active Substance: MORPHINE
     Indication: UPPER RESPIRATORY TRACT INFECTION
     Route: 042
     Dates: start: 20151122, end: 20151123
  23. OXYCONTIN [Concomitant]
     Active Substance: OXYCODONE HYDROCHLORIDE
     Indication: BACK PAIN
     Dosage: EVERY 12 HOURS AS NECESSARY
     Route: 048
     Dates: start: 20151022
  24. OXYCONTIN [Concomitant]
     Active Substance: OXYCODONE HYDROCHLORIDE
     Indication: HEADACHE
     Dosage: EVERY 12 HOURS AS NECESSARY
     Route: 048
     Dates: start: 20151022
  25. OXYCONTIN [Concomitant]
     Active Substance: OXYCODONE HYDROCHLORIDE
     Indication: BONE PAIN
     Dosage: EVERY 12 HOURS AS NECESSARY
     Route: 048
     Dates: start: 20151022
  26. COLACE [Concomitant]
     Active Substance: DOCUSATE SODIUM
     Indication: CONSTIPATION PROPHYLAXIS
     Route: 048
     Dates: start: 20140418
  27. LIORESAL [Concomitant]
     Active Substance: BACLOFEN
     Indication: MUSCLE SPASMS
     Route: 048
     Dates: start: 20141208
  28. ZITHROMAX [Concomitant]
     Active Substance: AZITHROMYCIN DIHYDRATE
     Indication: UPPER RESPIRATORY TRACT INFECTION
     Route: 048
     Dates: start: 20151123, end: 20151124
  29. MIRALAX [Concomitant]
     Active Substance: POLYETHYLENE GLYCOL 3350
     Indication: CONSTIPATION PROPHYLAXIS
     Dosage: AS NECESSARY
     Route: 048
     Dates: start: 201412
  30. TYLENOL [Concomitant]
     Active Substance: ACETAMINOPHEN
     Indication: UPPER RESPIRATORY TRACT INFECTION
     Route: 048
     Dates: start: 20151122, end: 20151122

REACTIONS (7)
  - Anaemia [Recovered/Resolved with Sequelae]
  - Pyrexia [Recovered/Resolved with Sequelae]
  - Blood calcium increased [Recovered/Resolved with Sequelae]
  - Bacteraemia [Recovered/Resolved]
  - Renal failure [Fatal]
  - Hypercalcaemia [Fatal]
  - Viral infection [Unknown]

NARRATIVE: CASE EVENT DATE: 20151202
